FAERS Safety Report 10312126 (Version 2)
Quarter: 2014Q3

REPORT INFORMATION
  Report Type: Spontaneous
  Country: US (occurrence: US)
  Receive Date: 20140717
  Receipt Date: 20140729
  Transmission Date: 20150326
  Serious: Yes (Other)
  Sender: FDA-Public Use
  Company Number: US-009507513-1407USA005334

PATIENT
  Sex: Female
  Weight: 84.35 kg

DRUGS (1)
  1. IMPLANON [Suspect]
     Active Substance: ETONOGESTREL
     Indication: CONTRACEPTION
     Dosage: 1 IMPLANON ROD
     Route: 059
     Dates: start: 20100423, end: 20120520

REACTIONS (6)
  - Abortion spontaneous [Recovered/Resolved]
  - Pelvic pain [Recovered/Resolved]
  - Maternal exposure before pregnancy [Recovered/Resolved]
  - Infertility female [Recovered/Resolved]
  - Uterine disorder [Recovered/Resolved]
  - Ovarian cyst [Recovered/Resolved]

NARRATIVE: CASE EVENT DATE: 2012
